FAERS Safety Report 6316406-X (Version None)
Quarter: 2009Q3

REPORT INFORMATION
  Report Type: 
  Country: None (occurrence: None)
  Receive Date: 20090820
  Receipt Date: 20090817
  Transmission Date: 20100115
  Serious: Yes (Hospitalization)
  Sender: FDA-Public Use
  Company Number: B0589385A

PATIENT
  Sex: Male

DRUGS (2)
  1. AUGMENTIN '125' [Suspect]
     Indication: OTITIS MEDIA ACUTE
     Dosage: 3G PER DAY
     Route: 048
     Dates: start: 20090806, end: 20090807
  2. OKI [Concomitant]
     Dosage: 240MG PER DAY
     Route: 048
     Dates: start: 20090806, end: 20090807

REACTIONS (3)
  - HEPATIC FUNCTION ABNORMAL [None]
  - MYALGIA [None]
  - RASH GENERALISED [None]
